FAERS Safety Report 9961218 (Version 1)
Quarter: 2014Q1

REPORT INFORMATION
  Report Type: Spontaneous
  Country: US (occurrence: US)
  Receive Date: 20140305
  Receipt Date: 20140305
  Transmission Date: 20141002
  Serious: Yes (Other)
  Sender: FDA-Public Use
  Company Number: US-AMGEN-USASP2014014376

PATIENT
  Age: 42 Year
  Sex: Male

DRUGS (3)
  1. NPLATE [Suspect]
     Indication: PRODUCT USED FOR UNKNOWN INDICATION
     Dosage: UNK
     Route: 065
     Dates: start: 20100909
  2. DANAZOLEN [Concomitant]
  3. PREDNISONE [Concomitant]

REACTIONS (2)
  - Immune thrombocytopenic purpura [Unknown]
  - Treatment noncompliance [Unknown]
